FAERS Safety Report 7105143-X (Version None)
Quarter: 2010Q4

REPORT INFORMATION
  Report Type: 
  Country: None (occurrence: None)
  Receive Date: 20101116
  Receipt Date: 20101101
  Transmission Date: 20110411
  Serious: Yes (Disabling, Other)
  Sender: FDA-Public Use
  Company Number: JP-BAYER-JP-2007-004119

PATIENT
  Age: 41 Year
  Sex: Female
  Weight: 44 kg

DRUGS (9)
  1. BETAFERON [Suspect]
     Indication: RELAPSING-REMITTING MULTIPLE SCLEROSIS
     Dosage: UNIT DOSE: 4 MIU
     Route: 058
     Dates: start: 20031111, end: 20031115
  2. BETAFERON [Suspect]
     Dosage: UNIT DOSE: 8 MIU
     Route: 058
     Dates: start: 20031117, end: 20031203
  3. CALCIUM LACTATE [Concomitant]
     Dosage: UNIT DOSE: 1 G
     Route: 048
  4. ONE-ALPHA [Concomitant]
     Dosage: UNIT DOSE: 0.5 ?G
     Route: 048
  5. LEXOTAN [Concomitant]
     Dosage: UNIT DOSE: 2 MG
     Route: 048
  6. GASTER D [Concomitant]
     Dosage: UNIT DOSE: 20 MG
     Route: 048
  7. MALFA [Concomitant]
     Dosage: UNIT DOSE: 10 ML
     Route: 048
  8. PURSENNID /SCH/ [Concomitant]
     Dosage: UNIT DOSE: 24 MG
     Route: 048
  9. LENDORMIN [Concomitant]
     Dosage: UNIT DOSE: 0.25 MG
     Route: 048

REACTIONS (10)
  - ANORECTAL DISORDER [None]
  - BLADDER DISORDER [None]
  - CSF CELL COUNT INCREASED [None]
  - HEADACHE [None]
  - MENINGITIS [None]
  - MYELITIS TRANSVERSE [None]
  - NEUROMYELITIS OPTICA [None]
  - PARAPLEGIA [None]
  - PYREXIA [None]
  - SPASTIC PARAPLEGIA [None]
